FAERS Safety Report 8796093 (Version 1)
Quarter: 2012Q4

REPORT INFORMATION
  Report Type: 
  Country: ES (occurrence: ES)
  Receive Date: 20120919
  Receipt Date: 20120919
  Transmission Date: 20130627
  Serious: Yes (Hospitalization, Other)
  Sender: FDA-Public Use
  Company Number: ES-MUTUAL PHARMACEUTICAL COMPANY, INC.-LVTM20120008

PATIENT
  Age: 18 Year
  Sex: Female
  Weight: 50 kg

DRUGS (2)
  1. LEVETIRACETAM [Suspect]
     Indication: EPILEPSY
     Route: 065
  2. VALPROIC ACID [Suspect]
     Indication: EPILEPSY
     Route: 065

REACTIONS (2)
  - Drug reaction with eosinophilia and systemic symptoms [None]
  - Hepatitis acute [None]
